FAERS Safety Report 4726164-8 (Version None)
Quarter: 2005Q3

REPORT INFORMATION
  Report Type: 
  Country: None (occurrence: None)
  Receive Date: 20050725
  Receipt Date: 20050711
  Transmission Date: 20060218
  Serious: Yes (Other)
  Sender: FDA-Public Use
  Company Number: 2005084959

PATIENT
  Age: 28 Year
  Sex: Female

DRUGS (1)
  1. NICORETTE [Suspect]
     Indication: SMOKING CESSATION THERAPY
     Dosage: 10 MG PATCH ONCE, TRANSDERMAL
     Route: 062
     Dates: start: 20050524, end: 20050524

REACTIONS (4)
  - APPLICATION SITE BRUISING [None]
  - PRURITUS [None]
  - SWELLING [None]
  - URTICARIA [None]
